FAERS Safety Report 8034489 (Version 2)
Quarter: 2013Q2

REPORT INFORMATION
  Report Type: Spontaneous
  Country: US (occurrence: None)
  Receive Date: 20110707
  Receipt Date: 20120705
  Transmission Date: 20140414
  Serious: Yes (Hospitalization)
  Sender: FDA-Public Use
  Company Number: US-CYPR-2011-000013

PATIENT
  Age: 59 Year
  Sex: Female
  Weight: 86.18 kg

DRUGS (6)
  1. PRASUGREL [Suspect]
     Indication: ANTIPLATELET THERAPY
     Dosage: (10 MG QD ORAL)
     Route: 048
     Dates: start: 201010
  2. ASPIRIN [Suspect]
     Indication: ANTIPLATELET THERAPY
     Dosage: (81 MG QD ORAL), (325 MG QD ORAL)
     Route: 048
     Dates: start: 20101018
  3. BYETTA [Concomitant]
  4. HYZAAR [Concomitant]
  5. SYNTHROID [Concomitant]
  6. CYPHER STENT [Concomitant]

REACTIONS (1)
  - ANGINA UNSTABLE [None]
